FAERS Safety Report 5519237-3 (Version None)
Quarter: 2007Q4

REPORT INFORMATION
  Report Type: 
  Country: None (occurrence: None)
  Receive Date: 20071116
  Receipt Date: 20071112
  Transmission Date: 20080405
  Serious: Yes (Other)
  Sender: FDA-Public Use
  Company Number: FR-BRISTOL-MYERS SQUIBB COMPANY-13978937

PATIENT
  Age: 48 Year
  Sex: Female

DRUGS (4)
  1. CYCLOPHOSPHAMIDE [Suspect]
     Route: 040
  2. CORTANCYL [Suspect]
     Dosage: REDUCING DOSE UP TO 12.5 MG/DAY.
  3. CELLCEPT [Suspect]
  4. METHYLPREDNISOLONE [Suspect]

REACTIONS (1)
  - PROGRESSIVE MULTIFOCAL LEUKOENCEPHALOPATHY [None]
